FAERS Safety Report 5456429-6 (Version None)
Quarter: 2007Q3

REPORT INFORMATION
  Report Type: 
  Country: None (occurrence: None)
  Receive Date: 20070914
  Receipt Date: 20070914
  Transmission Date: 20080115
  Serious: Yes (Other)
  Sender: FDA-Public Use
  Company Number: None

PATIENT

DRUGS (1)
  1. NASONEX [Suspect]
     Indication: SEASONAL ALLERGY
     Dates: start: 20070909, end: 20070912

REACTIONS (2)
  - ARRHYTHMIA [None]
  - VENTRICULAR EXTRASYSTOLES [None]
